FAERS Safety Report 14327830 (Version 2)
Quarter: 2018Q1

REPORT INFORMATION
  Report Type: Report from Study
  Country: US (occurrence: US)
  Receive Date: 20171227
  Receipt Date: 20180105
  Transmission Date: 20180509
  Serious: Yes (Hospitalization)
  Sender: FDA-Public Use
  Company Number: US-CLOVIS ONCOLOGY-CLO-2017-001478

PATIENT
  Sex: Female

DRUGS (1)
  1. RUBRACA [Suspect]
     Active Substance: RUCAPARIB CAMSYLATE
     Indication: OVARIAN CANCER
     Dosage: 400 MG, BID
     Route: 048

REACTIONS (4)
  - Colitis [Not Recovered/Not Resolved]
  - Bone marrow disorder [Not Recovered/Not Resolved]
  - Underdose [Unknown]
  - Adverse event [Not Recovered/Not Resolved]
